FAERS Safety Report 20922303 (Version 1)
Quarter: 2022Q2

REPORT INFORMATION
  Report Type: Spontaneous
  Country: JP (occurrence: JP)
  Receive Date: 20220607
  Receipt Date: 20220607
  Transmission Date: 20220720
  Serious: Yes (Other)
  Sender: FDA-Public Use
  Company Number: JP-SUN PHARMACEUTICAL INDUSTRIES LTD-2022R1-338149

PATIENT
  Age: 73 Year
  Sex: Female
  Weight: 38.8 kg

DRUGS (1)
  1. OCTREOTIDE [Suspect]
     Active Substance: OCTREOTIDE
     Indication: Chemotherapy
     Dosage: 100 MICROGRAM
     Route: 030

REACTIONS (3)
  - Hyperglycaemia [Recovering/Resolving]
  - Impaired insulin secretion [Unknown]
  - Drug level increased [Unknown]
